FAERS Safety Report 23112406 (Version 2)
Quarter: 2023Q4

REPORT INFORMATION
  Report Type: Spontaneous
  Country: US (occurrence: US)
  Receive Date: 20231027
  Receipt Date: 20231107
  Transmission Date: 20240110
  Serious: Yes (Hospitalization)
  Sender: FDA-Public Use
  Company Number: US-AMGEN-USASP2023190929

PATIENT
  Age: 42 Year
  Sex: Female

DRUGS (4)
  1. BLINCYTO [Suspect]
     Active Substance: BLINATUMOMAB
     Indication: Acute lymphocytic leukaemia
     Dosage: 28 MICROGRAM, EVERY 24 HOURS CONTINUING
     Route: 042
     Dates: start: 20230926, end: 20230928
  2. BLINCYTO [Suspect]
     Active Substance: BLINATUMOMAB
     Dosage: 48-HOUR BAG (5 ML/HR)
     Route: 042
     Dates: start: 20230928, end: 202310
  3. BLINCYTO [Suspect]
     Active Substance: BLINATUMOMAB
     Dosage: 7-DAY BAGS RUN AT 0.6 ML/HR
     Route: 042
     Dates: start: 20231002, end: 202310
  4. BLINCYTO [Suspect]
     Active Substance: BLINATUMOMAB
     Dosage: 24 HOUR BAG (10ML/HR)
     Route: 042
     Dates: start: 20231023, end: 20231024

REACTIONS (1)
  - Infusion site infection [Unknown]

NARRATIVE: CASE EVENT DATE: 20231023
